FAERS Safety Report 7775332-X (Version None)
Quarter: 2011Q3

REPORT INFORMATION
  Report Type: 
  Country: None (occurrence: None)
  Receive Date: 20110921
  Receipt Date: 20110908
  Transmission Date: 20111222
  Serious: Yes (Other)
  Sender: FDA-Public Use
  Company Number: 1000023694

PATIENT
  Age: 44 Year
  Sex: Female

DRUGS (9)
  1. REGLAN [Concomitant]
  2. VESICARE [Concomitant]
  3. AMBIEN [Concomitant]
  4. VIIBRYD [Suspect]
     Indication: DEPRESSION
     Dosage: 10 MG (10 MG, 1 IN 1 D), ORAL
     Route: 048
  5. XANAX [Concomitant]
  6. VIIBRYD [Suspect]
     Indication: DEPRESSION
     Dosage: 40 MG (40 MG, 1 IN 1 D), ORAL
     Route: 048
     Dates: end: 20110830
  7. LORCET-HD [Concomitant]
  8. CLARITIN [Concomitant]
  9. NEXIUM [Concomitant]

REACTIONS (4)
  - CONDITION AGGRAVATED [None]
  - INTENTIONAL SELF-INJURY [None]
  - SUICIDE ATTEMPT [None]
  - DEPRESSION [None]
